FAERS Safety Report 24151380 (Version 1)
Quarter: 2024Q3

REPORT INFORMATION
  Report Type: Spontaneous
  Country: GB (occurrence: GB)
  Receive Date: 20240730
  Receipt Date: 20240730
  Transmission Date: 20241017
  Serious: Yes (Other)
  Sender: LEO PHARM
  Company Number: None

PATIENT
  Age: 21 Year
  Sex: Female
  Weight: 70 kg

DRUGS (1)
  1. PROTOPIC [Suspect]
     Active Substance: TACROLIMUS
     Indication: Eczema
     Dosage: ONLY USED ON 5 DIFFERENT OCCASIONS OVER A PERIOD OF 3 MONTHS, HALF DAYS AT A TIME.

REACTIONS (2)
  - Withdrawal syndrome [Recovering/Resolving]
  - Inappropriate schedule of product administration [Unknown]

NARRATIVE: CASE EVENT DATE: 20240524
